FAERS Safety Report 9540478 (Version 2)
Quarter: 2013Q4

REPORT INFORMATION
  Report Type: Spontaneous
  Country: PT (occurrence: PT)
  Receive Date: 20130920
  Receipt Date: 20131017
  Transmission Date: 20140711
  Serious: Yes (Other)
  Sender: FDA-Public Use
  Company Number: PHHY2013PT101071

PATIENT
  Age: 25 Year
  Sex: Female
  Weight: 55 kg

DRUGS (2)
  1. ITRACONAZOLE SANDOZ [Suspect]
     Indication: TINEA VERSICOLOUR
     Dosage: 1 DF, BID
     Route: 048
     Dates: start: 20130813, end: 20130814
  2. MINIGESTE [Concomitant]
     Indication: CONTRACEPTION
     Route: 048
     Dates: start: 2006

REACTIONS (4)
  - Dry skin [Recovered/Resolved]
  - Dermatitis exfoliative [Recovered/Resolved]
  - Eye swelling [Recovered/Resolved]
  - Erythema [Recovered/Resolved]
